FAERS Safety Report 26112460 (Version 1)
Quarter: 2025Q4

REPORT INFORMATION
  Report Type: Spontaneous
  Country: US (occurrence: None)
  Receive Date: 20251201
  Receipt Date: 20251201
  Transmission Date: 20260118
  Serious: Yes (Hospitalization)
  Sender: FDA-CTU
  Company Number: None

PATIENT
  Sex: Female

DRUGS (3)
  1. OPSUMIT [Suspect]
     Active Substance: MACITENTAN
     Indication: Pulmonary arterial hypertension
     Dosage: 10 MG DAILY ORAL
     Route: 048
     Dates: start: 20250417
  2. REMODULIN [Suspect]
     Active Substance: TREPROSTINIL
  3. MORPHINE [Concomitant]
     Active Substance: MORPHINE

REACTIONS (4)
  - Injection site inflammation [None]
  - Injection site vesicles [None]
  - Movement disorder [None]
  - Injection site pain [None]
